FAERS Safety Report 12810307 (Version 1)
Quarter: 2016Q4

REPORT INFORMATION
  Report Type: Spontaneous
  Country: GB (occurrence: GB)
  Receive Date: 20161005
  Receipt Date: 20161005
  Transmission Date: 20170207
  Serious: Yes (Other)
  Sender: FDA-Public Use
  Company Number: GB-AUROBINDO-AUR-APL-2016-11990

PATIENT
  Age: 23 Year
  Sex: Male
  Weight: 71 kg

DRUGS (2)
  1. CITALOPRAM [Concomitant]
     Active Substance: CITALOPRAM HYDROBROMIDE
     Indication: PRODUCT USED FOR UNKNOWN INDICATION
     Route: 065
  2. MODAFINIL 200MG [Suspect]
     Active Substance: MODAFINIL
     Indication: FATIGUE
     Dosage: 200 MG, UNK
     Route: 048

REACTIONS (2)
  - Epididymitis [Recovered/Resolved]
  - Testicular pain [Recovered/Resolved]
